FAERS Safety Report 23812511 (Version 3)
Quarter: 2024Q3

REPORT INFORMATION
  Report Type: Spontaneous
  Country: JP (occurrence: JP)
  Receive Date: 20240503
  Receipt Date: 20240809
  Transmission Date: 20241017
  Serious: Yes (Death, Hospitalization, Other)
  Sender: BRISTOL MYERS SQUIBB
  Company Number: JP-TAIHO-2024-004562

PATIENT
  Age: 74 Year
  Sex: Male
  Weight: 53 kg

DRUGS (5)
  1. ABRAXANE [Suspect]
     Active Substance: PACLITAXEL
     Indication: Pancreatic carcinoma metastatic
     Dosage: ON DAYS 1, 8, AND 15 OF EACH 28-DAY CYCLE; 1 DOSING DAY DAILY DOSE: 200 MILLIGRAM(S
     Route: 041
     Dates: start: 20240418
  2. ABRAXANE [Suspect]
     Active Substance: PACLITAXEL
     Dosage: ON DAYS 1, 8, AND 15 OF EACH 28-DAY CYCLE; 1 DOSING DAY DAILY DOSE: 160 MILLIGRAM(S)
     Route: 041
     Dates: start: 20240425
  3. GEMCITABINE HYDROCHLORIDE [Suspect]
     Active Substance: GEMCITABINE HYDROCHLORIDE
     Indication: Pancreatic carcinoma recurrent
     Dosage: ON DAYS 1, 8, AND 15 OF EACH 28-DAY CYCLE; 1 DOSING DAY DAILY DOSE: 1580 MILLIGRAM(S
     Route: 041
     Dates: start: 20240418
  4. GEMCITABINE HYDROCHLORIDE [Suspect]
     Active Substance: GEMCITABINE HYDROCHLORIDE
     Dosage: ON DAYS 1, 8, AND 15 OF EACH 28-DAY CYCLE; 1 DOSING DAY DAILY DOSE: 1260 MILLIGRAM(S)
     Route: 041
     Dates: start: 20240425
  5. OXYCODONE HYDROCHLORIDE [Concomitant]
     Active Substance: OXYCODONE HYDROCHLORIDE
     Indication: Cancer pain
     Dosage: AS NEEDED
     Route: 048
     Dates: start: 20240406, end: 20240502

REACTIONS (7)
  - Pulmonary embolism [Fatal]
  - Neutropenia [Unknown]
  - Red blood cell count decreased [Unknown]
  - Platelet count decreased [Unknown]
  - Diarrhoea haemorrhagic [Unknown]
  - Ventricular extrasystoles [Unknown]
  - Malignant neoplasm progression [Fatal]

NARRATIVE: CASE EVENT DATE: 20240501
